FAERS Safety Report 11691148 (Version 2)
Quarter: 2015Q4

REPORT INFORMATION
  Report Type: Spontaneous
  Country: US (occurrence: US)
  Receive Date: 20151102
  Receipt Date: 20151116
  Transmission Date: 20160304
  Serious: Yes (Other)
  Sender: FDA-Public Use
  Company Number: US-LPDUSPRD-20150837

PATIENT
  Sex: Female

DRUGS (1)
  1. INJECTAFER [Suspect]
     Active Substance: FERRIC CARBOXYMALTOSE
     Dosage: DOSE NOT PROVIDED
     Route: 042
     Dates: start: 201510, end: 20151020

REACTIONS (7)
  - Anxiety [Recovered/Resolved]
  - Hypersensitivity [Unknown]
  - Hypertension [Unknown]
  - Dyspnoea [Unknown]
  - Chest discomfort [Unknown]
  - Anaphylactic reaction [Unknown]
  - Hypoaesthesia [Unknown]

NARRATIVE: CASE EVENT DATE: 20151020
